FAERS Safety Report 5630070-4 (Version None)
Quarter: 2008Q1

REPORT INFORMATION
  Report Type: 
  Country: None (occurrence: None)
  Receive Date: 20080218
  Receipt Date: 20080207
  Transmission Date: 20080703
  Serious: Yes (Other)
  Sender: FDA-Public Use
  Company Number: PHEH2008US00533

PATIENT
  Age: 11 Year
  Sex: Male
  Weight: 45.351 kg

DRUGS (1)
  1. TRILEPTAL [Suspect]
     Indication: PARTIAL SEIZURES
     Dosage: 300 MG A.M. 600 MG P.M.

REACTIONS (1)
  - BLOOD CHOLESTEROL INCREASED [None]
